FAERS Safety Report 13287988 (Version 1)
Quarter: 2017Q1

REPORT INFORMATION
  Report Type: Spontaneous
  Country: US (occurrence: US)
  Receive Date: 20170302
  Receipt Date: 20170302
  Transmission Date: 20170428
  Serious: Yes (Hospitalization)
  Sender: FDA-Public Use
  Company Number: US-SUNOVION-2017SUN000912

PATIENT
  Age: 60 Year
  Sex: Male

DRUGS (2)
  1. PROZAC [Concomitant]
     Active Substance: FLUOXETINE HYDROCHLORIDE
  2. LATUDA [Suspect]
     Active Substance: LURASIDONE HYDROCHLORIDE
     Indication: PERSONALITY DISORDER
     Dosage: UNK
     Route: 048

REACTIONS (4)
  - Emotional poverty [Unknown]
  - Paranoia [Unknown]
  - Dissociative identity disorder [Unknown]
  - Insomnia [Unknown]
